FAERS Safety Report 24568679 (Version 1)
Quarter: 2024Q4

REPORT INFORMATION
  Report Type: Spontaneous
  Country: US (occurrence: US)
  Receive Date: 20241031
  Receipt Date: 20241031
  Transmission Date: 20250114
  Serious: Yes (Other)
  Sender: NOVARTIS
  Company Number: US-002147023-NVSC2024US208074

PATIENT

DRUGS (1)
  1. KESIMPTA [Suspect]
     Active Substance: OFATUMUMAB
     Indication: Product used for unknown indication
     Dosage: UNK
     Route: 065

REACTIONS (11)
  - Multiple sclerosis relapse [Unknown]
  - Multiple sclerosis [Unknown]
  - Immunosuppression [Unknown]
  - Therapeutic response shortened [Unknown]
  - Fatigue [Unknown]
  - Chronic gastritis [Unknown]
  - Brain fog [Unknown]
  - Influenza like illness [Unknown]
  - Herpes zoster [Unknown]
  - Pyrexia [Unknown]
  - Rash [Unknown]
